FAERS Safety Report 22316931 (Version 1)
Quarter: 2023Q2

REPORT INFORMATION
  Report Type: Spontaneous
  Country: US (occurrence: US)
  Receive Date: 20230513
  Receipt Date: 20230513
  Transmission Date: 20230722
  Serious: No
  Sender: FDA-Public Use
  Company Number: US-002147023-NVSC2023US105157

PATIENT
  Sex: Female

DRUGS (1)
  1. KISQALI [Suspect]
     Active Substance: RIBOCICLIB
     Indication: Breast cancer metastatic
     Dosage: 600 MG, DAILY ON DAYS 1-21 EVERY 28 DAYS
     Route: 065

REACTIONS (3)
  - Dysphagia [Unknown]
  - Vocal cord paralysis [Unknown]
  - Oesophageal disorder [Unknown]
